FAERS Safety Report 24086854 (Version 1)
Quarter: 2024Q3

REPORT INFORMATION
  Report Type: Report from Study
  Country: IT (occurrence: IT)
  Receive Date: 20240713
  Receipt Date: 20240713
  Transmission Date: 20241017
  Serious: Yes (Hospitalization, Other)
  Sender: BAXTER
  Company Number: None

PATIENT
  Age: 10 Year
  Sex: Male
  Weight: 30 kg

DRUGS (4)
  1. IFOSFAMIDE [Suspect]
     Active Substance: IFOSFAMIDE
     Indication: Neuroblastoma recurrent
     Dosage: 1,930 MG/DAY
     Route: 042
     Dates: start: 20221128, end: 20221201
  2. MESNA [Suspect]
     Active Substance: MESNA
     Dosage: 800 MG/DAY
     Route: 065
     Dates: start: 20221128, end: 20221128
  3. ETOPOSIDE [Suspect]
     Active Substance: ETOPOSIDE
     Indication: Neuroblastoma recurrent
     Dosage: 107 MG/DAY
     Route: 042
     Dates: start: 20221128, end: 20221201
  4. CARBOPLATIN [Suspect]
     Active Substance: CARBOPLATIN
     Indication: Neuroblastoma recurrent
     Dosage: 430 MG, EVERY 1 DAY
     Route: 042
     Dates: start: 20221128, end: 20221129

REACTIONS (6)
  - Influenza [Recovering/Resolving]
  - Pancytopenia [Not Recovered/Not Resolved]
  - Febrile neutropenia [Recovered/Resolved]
  - Vomiting [Recovered/Resolved]
  - Pain in extremity [Recovered/Resolved]
  - Stomatitis [Recovered/Resolved]

NARRATIVE: CASE EVENT DATE: 20221201
